FAERS Safety Report 11607084 (Version 1)
Quarter: 2015Q4

REPORT INFORMATION
  Report Type: Report from Study
  Country: US (occurrence: US)
  Receive Date: 20151007
  Receipt Date: 20151007
  Transmission Date: 20160304
  Serious: Yes (Hospitalization, Other)
  Sender: FDA-Public Use
  Company Number: US-BAYER-2015-103938

PATIENT
  Age: 73 Year
  Sex: Female

DRUGS (8)
  1. HYDRALAZINE [Concomitant]
     Active Substance: HYDRALAZINE HYDROCHLORIDE
  2. NEXAVAR [Suspect]
     Active Substance: SORAFENIB
     Indication: RENAL CANCER
     Dosage: 200 MG, BID
     Dates: start: 20140727
  3. ALLOPURINOL. [Concomitant]
     Active Substance: ALLOPURINOL
  4. NEXAVAR [Suspect]
     Active Substance: SORAFENIB
     Indication: RENAL CANCER
     Dosage: 200 MG, QD
     Route: 048
     Dates: start: 201411, end: 20150902
  5. NEXAVAR [Suspect]
     Active Substance: SORAFENIB
     Indication: RENAL CANCER
     Dosage: 200 MG, QD
     Route: 048
     Dates: start: 20140220, end: 20140924
  6. LORAZ [Concomitant]
     Active Substance: LORAZEPAM
  7. GABAPENTIN. [Concomitant]
     Active Substance: GABAPENTIN
  8. LASIX [Concomitant]
     Active Substance: FUROSEMIDE

REACTIONS (4)
  - Clostridium difficile colitis [None]
  - Mental status changes [Recovered/Resolved]
  - Hospitalisation [None]
  - Lung neoplasm malignant [None]
